FAERS Safety Report 4340598-5 (Version None)
Quarter: 2004Q2

REPORT INFORMATION
  Report Type: 
  Country: None (occurrence: None)
  Receive Date: 20040414
  Receipt Date: 20040404
  Transmission Date: 20050107
  Serious: Yes (Hospitalization)
  Sender: FDA-Public Use
  Company Number: 04P-062-0256180-00

PATIENT
  Age: 33 Year
  Sex: Male
  Weight: 80 kg

DRUGS (3)
  1. AKINETON [Suspect]
     Indication: SUICIDE ATTEMPT
     Dosage: 68 MG, 4 MG X 17, ONCE, PER ORAL
     Route: 048
     Dates: start: 20040404, end: 20040404
  2. LEPONEX [Suspect]
     Indication: SUICIDE ATTEMPT
     Dosage: 2000 MG, 100 MG X 20, ONCE, PER ORAL
     Route: 048
     Dates: start: 20040404, end: 20040404
  3. PAROXETINE HCL [Suspect]
     Indication: SUICIDE ATTEMPT
     Dosage: 200 MG, 20 MG X 10, ONCE, PER ORAL
     Route: 048
     Dates: start: 20040404, end: 20040404

REACTIONS (4)
  - OVERDOSE [None]
  - SOMNOLENCE [None]
  - SUICIDE ATTEMPT [None]
  - TACHYCARDIA [None]
